FAERS Safety Report 6814675-0 (Version None)
Quarter: 2010Q2

REPORT INFORMATION
  Report Type: 
  Country: None (occurrence: None)
  Receive Date: 20100629
  Receipt Date: 20100616
  Transmission Date: 20101027
  Serious: Yes (Congenital Anomaly)
  Sender: FDA-Public Use
  Company Number: 230004M09IRL

PATIENT
  Sex: Female
  Weight: 3.3 kg

DRUGS (1)
  1. REBIF [Suspect]
     Dosage: 44, DRUG TAKEN BY PATIENT'S MOTHER

REACTIONS (3)
  - ANOMALY OF EXTERNAL EAR CONGENITAL [None]
  - MATERNAL DRUGS AFFECTING FOETUS [None]
  - MICROTIA [None]
